FAERS Safety Report 17560203 (Version 1)
Quarter: 2020Q1

REPORT INFORMATION
  Report Type: Report from Study
  Country: MX (occurrence: MX)
  Receive Date: 20200319
  Receipt Date: 20200319
  Transmission Date: 20200409
  Serious: Yes (Hospitalization)
  Sender: FDA-Public Use
  Company Number: NVSC2020MX077472

PATIENT
  Age: 80 Year
  Sex: Female
  Weight: 80 kg

DRUGS (1)
  1. EXFORGE HCT [Suspect]
     Active Substance: AMLODIPINE BESYLATE\HYDROCHLOROTHIAZIDE\VALSARTAN
     Indication: PRODUCT USED FOR UNKNOWN INDICATION
     Dosage: 1 DF (AMLODIPINE 5 MG/ VALSARTAN 160 MG/ HYDROCHLOROTHIAZIDE 12.5 MG), QD (2 OR 3 YEARS AGO)
     Route: 048

REACTIONS (8)
  - Arthralgia [Not Recovered/Not Resolved]
  - Bone disorder [Unknown]
  - Head discomfort [Unknown]
  - Fall [Unknown]
  - Ligament disorder [Unknown]
  - Visual impairment [Unknown]
  - Blood pressure increased [Unknown]
  - Mobility decreased [Unknown]

NARRATIVE: CASE EVENT DATE: 201909
